FAERS Safety Report 4585866-7 (Version None)
Quarter: 2005Q1

REPORT INFORMATION
  Report Type: 
  Country: None (occurrence: None)
  Receive Date: 20050217
  Receipt Date: 20041203
  Transmission Date: 20050727
  Serious: Yes (Hospitalization)
  Sender: FDA-Public Use
  Company Number: JP-GLAXOSMITHKLINE-B0359329A

PATIENT
  Age: 75 Year
  Sex: Female
  Weight: 53 kg

DRUGS (8)
  1. ZOVIRAX [Suspect]
     Indication: HERPES ZOSTER
     Dosage: 250MG THREE TIMES PER DAY
     Route: 042
     Dates: start: 20041123, end: 20041126
  2. SOLITA-T NO.3 [Concomitant]
     Dosage: 200ML THREE TIMES PER DAY
     Route: 042
     Dates: start: 20041123, end: 20041126
  3. ISOTONIC SODIUM CHLORIDE SOLUTION [Concomitant]
     Dosage: 20ML THREE TIMES PER DAY
     Dates: start: 20041123, end: 20041126
  4. GANATON [Concomitant]
     Route: 048
  5. JUVELA [Concomitant]
     Route: 065
  6. MEVALOTIN [Concomitant]
     Route: 048
  7. DEPAS [Concomitant]
     Route: 048
  8. ALOSENN [Concomitant]
     Route: 048

REACTIONS (9)
  - ALANINE AMINOTRANSFERASE INCREASED [None]
  - ASPARTATE AMINOTRANSFERASE INCREASED [None]
  - BLOOD CREATININE INCREASED [None]
  - BLOOD LACTATE DEHYDROGENASE INCREASED [None]
  - C-REACTIVE PROTEIN INCREASED [None]
  - DRUG ERUPTION [None]
  - GAMMA-GLUTAMYLTRANSFERASE INCREASED [None]
  - PYREXIA [None]
  - WHITE BLOOD CELL COUNT INCREASED [None]
